FAERS Safety Report 9644710 (Version 1)
Quarter: 2013Q4

REPORT INFORMATION
  Report Type: Spontaneous
  Country: FR (occurrence: FR)
  Receive Date: 20131025
  Receipt Date: 20131025
  Transmission Date: 20140711
  Serious: Yes (Life-Threatening, Hospitalization, Other)
  Sender: FDA-Public Use
  Company Number: FR-ELI_LILLY_AND_COMPANY-FR201310005232

PATIENT
  Age: 70 Year
  Sex: Female

DRUGS (1)
  1. PROZAC [Suspect]
     Indication: DEPRESSION
     Dosage: 1 DF, UNKNOWN
     Route: 048
     Dates: start: 201307, end: 201308

REACTIONS (5)
  - Hyponatraemia [Recovered/Resolved]
  - General physical health deterioration [Unknown]
  - Inappropriate antidiuretic hormone secretion [Unknown]
  - Malnutrition [Unknown]
  - Hypotension [Unknown]
